FAERS Safety Report 14781980 (Version 1)
Quarter: 2018Q2

REPORT INFORMATION
  Report Type: Spontaneous
  Country: DE (occurrence: DE)
  Receive Date: 20180420
  Receipt Date: 20180420
  Transmission Date: 20180711
  Serious: Yes (Hospitalization)
  Sender: FDA-Public Use
  Company Number: DE-ESPERO PHARMACEUTICALS-ESP201804-000016

PATIENT
  Age: 70 Year
  Sex: Female
  Weight: 68.5 kg

DRUGS (20)
  1. NIFEDIPINE. [Suspect]
     Active Substance: NIFEDIPINE
     Route: 048
  2. MINOXIDIL. [Concomitant]
     Active Substance: MINOXIDIL
     Dosage: 2.5 MG, 0.5-0-0.5-0
     Route: 048
  3. RESONIUM A [Concomitant]
     Active Substance: SODIUM POLYSTYRENE SULFONATE
     Route: 048
  4. CINACALCET. [Concomitant]
     Active Substance: CINACALCET
     Dosage: 60 MG, 1-0-0-0
     Route: 048
  5. MAGNESIOCARD [Concomitant]
     Active Substance: MAGNESIUM ASPARTATE HYDROCHLORIDE
     Dosage: 7.5 MG, 1-0-1-0
     Route: 048
  6. NIFEDIPINE. [Suspect]
     Active Substance: NIFEDIPINE
     Dosage: 30 MG, 1-0-0-1
  7. FORMOTEROL [Concomitant]
     Active Substance: FORMOTEROL
     Dosage: 12 ?G, 1-2-2-0
     Route: 048
  8. SEVELAMER [Concomitant]
     Active Substance: SEVELAMER
     Dosage: 800 MG, 2-3-2-0
     Route: 048
  9. NITROGLYCERIN. [Suspect]
     Active Substance: NITROGLYCERIN
  10. VALSARTAN. [Suspect]
     Active Substance: VALSARTAN
     Route: 048
  11. SODIUM HYDROGEN CARBONATE [Concomitant]
     Active Substance: SODIUM BICARBONATE
     Dosage: 2-2-2-0
     Route: 048
  12. CARVEDILOL. [Suspect]
     Active Substance: CARVEDILOL
     Dosage: 1-0-1-0
     Route: 048
  13. MOXONIDINE [Suspect]
     Active Substance: MOXONIDINE
     Dosage: 0.2 MG, 1-1-1-0
     Route: 048
  14. DOXAZOSIN [Concomitant]
     Active Substance: DOXAZOSIN\DOXAZOSIN MESYLATE
     Route: 048
  15. ALLOPURINOL. [Concomitant]
     Active Substance: ALLOPURINOL
     Dosage: 100 MG, 0-1-0-0
     Route: 048
  16. FOSRENOL [Concomitant]
     Active Substance: LANTHANUM CARBONATE
     Dosage: 750 MG, 0-1-0-0
     Route: 048
  17. L THYROXIN [Concomitant]
     Active Substance: LEVOTHYROXINE SODIUM
     Dosage: 75 ?G, 1-0-0-0
     Route: 048
  18. TORASEMIDE [Suspect]
     Active Substance: TORSEMIDE
     Dosage: 2-2-0-0
     Route: 048
  19. TORASEMIDE [Suspect]
     Active Substance: TORSEMIDE
     Dosage: 10 MG, 2-2-0-0
     Route: 048
  20. CALCITRIOL. [Concomitant]
     Active Substance: CALCITRIOL
     Dosage: 0.25 ?G, 0-1-0-0
     Route: 048

REACTIONS (2)
  - Hypertension [Unknown]
  - Renal impairment [Unknown]

NARRATIVE: CASE EVENT DATE: 20151007
